FAERS Safety Report 8375994-2 (Version None)
Quarter: 2012Q2

REPORT INFORMATION
  Report Type: 
  Country: None (occurrence: None)
  Receive Date: 20120517
  Receipt Date: 20120509
  Transmission Date: 20120825
  Serious: Yes (Hospitalization, Other)
  Sender: FDA-Public Use
  Company Number: 217374

PATIENT
  Sex: Female

DRUGS (10)
  1. FERROUS SULFATE TAB [Concomitant]
  2. DURAGESIC-100 [Concomitant]
  3. EXFORGE (AMLODIPINE W/VALSARTAN) (TABLET) [Concomitant]
  4. MORPHINE SULFATE [Concomitant]
  5. IMOVANE (ZOPICLONE) [Concomitant]
  6. SUTENT [Suspect]
     Indication: METASTATIC RENAL CELL CARCINOMA
     Dosage: 25 MG, ORAL
     Route: 048
     Dates: end: 20120406
  7. ATHYMIL (MANSERIN HYDROCHLORIDE) [Concomitant]
  8. INEXIUM (ESOMEPARZOLE MAGNESIUM) [Concomitant]
  9. INNOHEP [Suspect]
     Indication: PRODUCT USED FOR UNKNOWN INDICATION
     Dosage: 10000 IU, SUBCUTANEOUS
     Route: 058
     Dates: end: 20120406
  10. XANAX [Concomitant]

REACTIONS (9)
  - LOSS OF CONSCIOUSNESS [None]
  - HAEMORRHAGE INTRACRANIAL [None]
  - HYPOTONIA [None]
  - CEREBRAL HAEMORRHAGE [None]
  - HAEMOGLOBIN DECREASED [None]
  - DISTURBANCE IN ATTENTION [None]
  - BLOOD SODIUM DECREASED [None]
  - COMA [None]
  - THERAPEUTIC RESPONSE UNEXPECTED [None]
